FAERS Safety Report 6540867-4 (Version None)
Quarter: 2010Q1

REPORT INFORMATION
  Report Type: 
  Country: None (occurrence: None)
  Receive Date: 20100118
  Receipt Date: 20100107
  Transmission Date: 20100710
  Serious: Yes (Other)
  Sender: FDA-Public Use
  Company Number: US-ELI_LILLY_AND_COMPANY-US200911005102

PATIENT
  Sex: Male
  Weight: 82.086 kg

DRUGS (11)
  1. EFFIENT [Suspect]
     Indication: PERCUTANEOUS CORONARY INTERVENTION
     Dosage: 60 MG, UNK
     Route: 048
     Dates: start: 20090929, end: 20090929
  2. EFFIENT [Suspect]
     Dosage: 10 MG, DAILY (1/D)
     Route: 048
     Dates: start: 20090101
  3. COREG [Concomitant]
     Dosage: 6.25 MG, 2/D
     Route: 048
  4. COREG [Concomitant]
     Dosage: 12.5 MG, DAILY (1/D)
     Route: 048
  5. FLUOXETINE [Concomitant]
     Dosage: 20 MG, DAILY (1/D)
     Route: 048
  6. ASPIRIN [Concomitant]
     Dosage: 81 MG, DAILY (1/D)
     Route: 048
  7. DIGOXIN [Concomitant]
     Dosage: 125 UG, DAILY (1/D)
     Route: 048
  8. LISINOPRIL [Concomitant]
     Dosage: 5 MG, DAILY (1/D)
     Route: 048
  9. SPIRONOLACTONE [Concomitant]
     Dosage: 12.5 MG, DAILY (1/D)
     Route: 048
  10. SIMVASTATIN [Concomitant]
     Dates: end: 20091201
  11. SIMVASTATIN [Concomitant]
     Dosage: 80 MG, EACH EVENING
     Route: 048
     Dates: start: 20091201

REACTIONS (3)
  - EJECTION FRACTION DECREASED [None]
  - INTERNATIONAL NORMALISED RATIO INCREASED [None]
  - INTRACARDIAC THROMBUS [None]
